FAERS Safety Report 22654565 (Version 1)
Quarter: 2023Q2

REPORT INFORMATION
  Report Type: Spontaneous
  Country: US (occurrence: US)
  Receive Date: 20230629
  Receipt Date: 20230629
  Transmission Date: 20230722
  Serious: No
  Sender: FDA-Public Use
  Company Number: US-BAYER-2023A086770

PATIENT
  Age: 41 Year
  Sex: Female

DRUGS (1)
  1. MIRENA [Suspect]
     Active Substance: LEVONORGESTREL
     Dosage: 20?G/DAY
     Route: 015
     Dates: start: 20230512, end: 20230522

REACTIONS (3)
  - Device expulsion [Recovered/Resolved]
  - Medical device discomfort [None]
  - Medical device pain [None]

NARRATIVE: CASE EVENT DATE: 20230501
